FAERS Safety Report 6733452-2 (Version None)
Quarter: 2010Q2

REPORT INFORMATION
  Report Type: 
  Country: None (occurrence: None)
  Receive Date: 20100520
  Receipt Date: 20100517
  Transmission Date: 20101027
  Serious: Yes (Other)
  Sender: FDA-Public Use
  Company Number: US-TEVA-234876USA

PATIENT
  Age: 40 Year
  Sex: Female
  Weight: 99.88 kg

DRUGS (21)
  1. COPAXONE [Suspect]
     Indication: MULTIPLE SCLEROSIS
     Route: 058
     Dates: start: 20020101, end: 20090101
  2. PREGABALIN [Suspect]
     Indication: NEUROPATHY PERIPHERAL
     Dates: start: 20080101
  3. PREGABALIN [Suspect]
     Dates: start: 20100101
  4. PHENYTOIN [Suspect]
     Indication: CONVULSION
     Dates: start: 20070101, end: 20090101
  5. THYROID TAB [Concomitant]
  6. MORPHINE SULFATE [Concomitant]
  7. FENTANYL [Concomitant]
  8. OXYGEN [Concomitant]
  9. XANAX XR [Concomitant]
  10. EZETIMIBE/SIMVASTATIN [Concomitant]
     Dosage: 10/20 MG
  11. ESOMEPRAZOLE MAGNESIUM [Concomitant]
  12. BACLOFEN [Concomitant]
  13. RIZATRIPTAN BENZOATE [Concomitant]
     Indication: MIGRAINE
  14. ONDANSETRON [Concomitant]
     Indication: NAUSEA
  15. TIZANIDINE HYDROCHLORIDE [Concomitant]
     Indication: MUSCLE SPASMS
  16. BETHANECHOL CHLORIDE [Concomitant]
     Indication: BLADDER DISORDER
  17. DICYCLOMINE HCL [Concomitant]
  18. OXYBUTYNIN [Concomitant]
  19. SALBUTAMOL [Concomitant]
     Indication: ASTHMA
  20. MACROGOL [Concomitant]
     Indication: CONSTIPATION
  21. RELISTOR [Concomitant]

REACTIONS (5)
  - ANGINA PECTORIS [None]
  - ARTHRITIS [None]
  - HEPATIC ENZYME INCREASED [None]
  - NARCOLEPSY [None]
  - OEDEMA PERIPHERAL [None]
